FAERS Safety Report 16366545 (Version 1)
Quarter: 2019Q2

REPORT INFORMATION
  Report Type: Report from Study
  Country: US (occurrence: US)
  Receive Date: 20190529
  Receipt Date: 20190529
  Transmission Date: 20190711
  Serious: Yes (Other)
  Sender: FDA-Public Use
  Company Number: US-JAZZ-2019-US-005588

PATIENT
  Age: 67 Year
  Sex: Female

DRUGS (18)
  1. BUTALB/ACET/CAFFEINE [Concomitant]
  2. IRON [Concomitant]
     Active Substance: IRON
  3. XYREM [Suspect]
     Active Substance: SODIUM OXYBATE
     Dosage: 2.5 G, (INCORRECT SECOND DOSE)
     Route: 048
     Dates: start: 20190416, end: 2019
  4. METHYLPHENIDATE. [Concomitant]
     Active Substance: METHYLPHENIDATE
  5. VENTOLIN HFA [Concomitant]
     Active Substance: ALBUTEROL SULFATE
  6. LIPITOR [Concomitant]
     Active Substance: ATORVASTATIN CALCIUM
  7. PROMETHAZINE [Concomitant]
     Active Substance: PROMETHAZINE\PROMETHAZINE HYDROCHLORIDE
  8. XYREM [Suspect]
     Active Substance: SODIUM OXYBATE
     Dosage: 3 G, BID
     Route: 048
     Dates: start: 2019
  9. BROMOCRIPTINE [Concomitant]
     Active Substance: BROMOCRIPTINE
  10. LEVOTHYROXINE. [Concomitant]
     Active Substance: LEVOTHYROXINE
  11. ALEVE [Concomitant]
     Active Substance: NAPROXEN SODIUM
  12. PROAIR HFA [Concomitant]
     Active Substance: ALBUTEROL SULFATE
  13. SYMBICORT [Concomitant]
     Active Substance: BUDESONIDE\FORMOTEROL FUMARATE DIHYDRATE
  14. XYREM [Suspect]
     Active Substance: SODIUM OXYBATE
     Indication: NARCOLEPSY
     Dosage: 2 G, (FIRST DOSE)
     Route: 048
     Dates: start: 20190416
  15. DEPAKOTE [Concomitant]
     Active Substance: DIVALPROEX SODIUM
  16. IBUPROFEN. [Concomitant]
     Active Substance: IBUPROFEN
  17. MUCINEX [Concomitant]
     Active Substance: GUAIFENESIN
  18. VITAMIN D3 [Concomitant]
     Active Substance: CHOLECALCIFEROL

REACTIONS (16)
  - Retching [Unknown]
  - Pneumonia [Unknown]
  - Hyperhidrosis [Unknown]
  - Diarrhoea [Unknown]
  - Nausea [Not Recovered/Not Resolved]
  - Migraine [Unknown]
  - Cough [Not Recovered/Not Resolved]
  - Muscle spasms [Not Recovered/Not Resolved]
  - Dizziness [Not Recovered/Not Resolved]
  - Abdominal pain upper [Unknown]
  - Asthenia [Unknown]
  - Headache [Unknown]
  - Wrong dose [Unknown]
  - Hunger [Unknown]
  - Paranasal sinus hypersecretion [Not Recovered/Not Resolved]
  - Thirst [Unknown]

NARRATIVE: CASE EVENT DATE: 20190416
